FAERS Safety Report 14364716 (Version 1)
Quarter: 2018Q1

REPORT INFORMATION
  Report Type: Spontaneous
  Country: US (occurrence: US)
  Receive Date: 20180108
  Receipt Date: 20180108
  Transmission Date: 20180509
  Serious: Yes (Hospitalization)
  Sender: FDA-Public Use
  Company Number: US-PFIZER INC-2018003728

PATIENT
  Age: 38 Year
  Sex: Female

DRUGS (1)
  1. THROMBIN [Suspect]
     Active Substance: THROMBIN
     Indication: HAEMOSTASIS
     Dosage: UNK

REACTIONS (1)
  - Post procedural pulmonary embolism [Recovered/Resolved]
